FAERS Safety Report 21439201 (Version 6)
Quarter: 2023Q1

REPORT INFORMATION
  Report Type: Report from Study
  Country: US (occurrence: US)
  Receive Date: 20221011
  Receipt Date: 20230106
  Transmission Date: 20230418
  Serious: No
  Sender: FDA-Public Use
  Company Number: US-NOVARTISTESTPH-NVSC2022US229227

PATIENT
  Age: 86 Year
  Sex: Male

DRUGS (1)
  1. LEQVIO [Suspect]
     Active Substance: INCLISIRAN SODIUM
     Indication: Blood cholesterol decreased
     Dosage: UNK
     Route: 058
     Dates: start: 20220908

REACTIONS (2)
  - Weight decreased [Unknown]
  - Product availability issue [Unknown]

NARRATIVE: CASE EVENT DATE: 20221226
